FAERS Safety Report 8299430 (Version 3)
Quarter: 2012Q4

REPORT INFORMATION
  Report Type: Report from Study
  Country: US (occurrence: US)
  Receive Date: 20111219
  Receipt Date: 20121017
  Transmission Date: 20130627
  Serious: Yes (Hospitalization)
  Sender: FDA-Public Use
  Company Number: US-JNJFOC-20111204925

PATIENT
  Age: 15 Year
  Sex: Female
  Weight: 63.7 kg

DRUGS (22)
  1. REMICADE [Suspect]
     Indication: CROHN^S DISEASE
     Route: 042
  2. REMICADE [Suspect]
     Indication: CROHN^S DISEASE
     Route: 042
     Dates: start: 20071114, end: 201111
  3. SINGULAIR [Concomitant]
  4. MUPIROCIN [Concomitant]
  5. 5-ASA [Concomitant]
     Route: 048
  6. METHOTREXATE [Concomitant]
  7. AMITRIPTYLINE [Concomitant]
  8. FOLIC ACID [Concomitant]
  9. BACTROBAN [Concomitant]
     Route: 045
  10. FERROUS SULFATE [Concomitant]
  11. FLUOCINONIDE [Concomitant]
  12. LIDEX [Concomitant]
  13. VITAMIN D [Concomitant]
  14. FLORASTOR [Concomitant]
  15. LUXIQ [Concomitant]
  16. ALBUTEROL [Concomitant]
     Route: 055
  17. MULTIPLE VITAMIN [Concomitant]
  18. OMEGA 3 FATTY ACID [Concomitant]
  19. CLOBETASOL [Concomitant]
  20. FLAGYL [Concomitant]
  21. CEFZIL [Concomitant]
  22. FLUOCINOLONE [Concomitant]
     Route: 061

REACTIONS (1)
  - Crohn^s disease [Recovered/Resolved with Sequelae]
